FAERS Safety Report 12551752 (Version 1)
Quarter: 2016Q3

REPORT INFORMATION
  Report Type: Spontaneous
  Country: US (occurrence: US)
  Receive Date: 20160713
  Receipt Date: 20160713
  Transmission Date: 20161109
  Serious: No
  Sender: FDA-Public Use
  Company Number: US-BAYER-2016-129344

PATIENT
  Sex: Female
  Weight: 54.42 kg

DRUGS (4)
  1. LINZESS [Concomitant]
     Active Substance: LINACLOTIDE
  2. METAMUCIL [Concomitant]
     Active Substance: PLANTAGO SEED
  3. MIRALAX [Suspect]
     Active Substance: POLYETHYLENE GLYCOL 3350
     Indication: CONSTIPATION
     Dosage: UNK
     Route: 048
     Dates: start: 2009
  4. EVISTA [RALOXIFENE HYDROCHLORIDE] [Concomitant]

REACTIONS (6)
  - Weight increased [Not Recovered/Not Resolved]
  - Frequent bowel movements [Unknown]
  - Product use issue [None]
  - Abnormal faeces [Not Recovered/Not Resolved]
  - Drug effect incomplete [None]
  - Product use issue [None]

NARRATIVE: CASE EVENT DATE: 2009
